FAERS Safety Report 5716903-1 (Version None)
Quarter: 2008Q2

REPORT INFORMATION
  Report Type: 
  Country: None (occurrence: None)
  Receive Date: 20080424
  Receipt Date: 20080328
  Transmission Date: 20081010
  Serious: No
  Sender: FDA-Public Use
  Company Number: US-BOEHRINGER INGELHEIM GMBH, GERMANY-2008-BP-04829BP

PATIENT
  Sex: Female

DRUGS (6)
  1. SPIRIVA [Suspect]
     Indication: CHRONIC OBSTRUCTIVE PULMONARY DISEASE
     Route: 055
     Dates: start: 20060101
  2. PROAIR HFA [Concomitant]
     Indication: ASTHMA
  3. PROAIR HFA [Concomitant]
     Indication: HYPERSENSITIVITY
  4. QVAR 40 [Concomitant]
     Indication: ASTHMA
  5. QVAR 40 [Concomitant]
     Indication: HYPERSENSITIVITY
  6. ALLERGY SHOTS [Concomitant]
     Indication: MULTIPLE ALLERGIES

REACTIONS (2)
  - CHEST PAIN [None]
  - PALPITATIONS [None]
